FAERS Safety Report 10237699 (Version 1)
Quarter: 2014Q2

REPORT INFORMATION
  Report Type: Spontaneous
  Country: FR (occurrence: FR)
  Receive Date: 20140616
  Receipt Date: 20140616
  Transmission Date: 20141212
  Serious: Yes (Hospitalization)
  Sender: FDA-Public Use
  Company Number: FR-009507513-1406FRA005050

PATIENT
  Age: 82 Year
  Sex: Male

DRUGS (7)
  1. INVANZ [Suspect]
     Indication: PROSTATITIS
     Dosage: 1 DF, QD
     Route: 042
     Dates: start: 20140212, end: 20140228
  2. CLINDAMYCIN [Suspect]
     Indication: DEVICE RELATED INFECTION
     Dosage: 3 DF, QD
     Route: 042
     Dates: start: 20140207, end: 20140227
  3. CUBICIN [Suspect]
     Indication: DEVICE RELATED INFECTION
     Dosage: 1 DF, QD
     Route: 042
  4. SMECTA [Concomitant]
     Route: 048
  5. MAG 2 [Concomitant]
     Dosage: 2 DF, BID
     Route: 048
     Dates: start: 201402
  6. OXACILLIN SODIUM [Concomitant]
     Dosage: UNK
     Route: 042
     Dates: start: 201401, end: 20140207
  7. OFLOXACIN [Concomitant]
     Dosage: 200 MG, TID
     Route: 042
     Dates: start: 201401, end: 20140207

REACTIONS (1)
  - Dermatitis exfoliative [Recovered/Resolved]
